FAERS Safety Report 5565365-6 (Version None)
Quarter: 2007Q4

REPORT INFORMATION
  Report Type: 
  Country: None (occurrence: None)
  Receive Date: 20071218
  Receipt Date: 20060328
  Transmission Date: 20080405
  Serious: Yes (Death)
  Sender: FDA-Public Use
  Company Number: US-ROCHE-372493

PATIENT
  Age: 46 Year
  Sex: Male
  Weight: 82.7 kg

DRUGS (16)
  1. FUZEON [Suspect]
     Indication: DRUG USE FOR UNKNOWN INDICATION
     Route: 065
  2. LASIX [Concomitant]
     Route: 048
  3. SPIRONOLACTONE [Concomitant]
  4. COREG [Concomitant]
  5. DECA-DURABOLIN [Concomitant]
     Dosage: REPORTED AS: DECADUROBULIN.
     Route: 030
  6. TESTOSTERONE [Concomitant]
     Route: 030
  7. PROZAC [Concomitant]
     Route: 048
  8. NORVIR [Concomitant]
  9. VIREAD [Concomitant]
     Route: 048
  10. TRIZIVIR [Concomitant]
  11. TIPRANAVIR [Concomitant]
     Dosage: REPORTED AS: TRIPRINAVIR.
  12. KALETRA [Concomitant]
  13. OXANDRIN [Concomitant]
  14. SEPTRA [Concomitant]
     Dosage: REPORTED AS: SEPTRA DS.
     Route: 048
  15. ACYCLOVIR [Concomitant]
  16. LISINOPRIL [Concomitant]
     Dosage: REPORTED AS: LISINPRIN.

REACTIONS (3)
  - DEATH [None]
  - INJECTION SITE MASS [None]
  - INJECTION SITE REACTION [None]
